FAERS Safety Report 4304599-5 (Version None)
Quarter: 2004Q1

REPORT INFORMATION
  Report Type: 
  Country: None (occurrence: None)
  Receive Date: 20040224
  Receipt Date: 20040213
  Transmission Date: 20041129
  Serious: Yes (Hospitalization)
  Sender: FDA-Public Use
  Company Number: 040217-0000272

PATIENT
  Age: 54 Year
  Sex: Male

DRUGS (3)
  1. TRANXENE [Suspect]
     Dosage: 20 MG;2X;PO
     Route: 048
     Dates: start: 20020823, end: 20020823
  2. NUBAIN ^ENDO^ (NALBUPHINE HYDROCHLORIDE) [Suspect]
     Indication: PAIN
     Dosage: 10 MG; 1X; IV
     Route: 042
     Dates: start: 20020823, end: 20020823
  3. ATARAX [Suspect]
     Dosage: 25 MG;1X;PO
     Route: 048
     Dates: start: 20020823, end: 20020823

REACTIONS (4)
  - BRADYPNOEA [None]
  - PROCEDURAL COMPLICATION [None]
  - RESPIRATORY DEPRESSION [None]
  - SOMNOLENCE [None]
